FAERS Safety Report 8561787-X (Version None)
Quarter: 2012Q3

REPORT INFORMATION
  Report Type: 
  Country: None (occurrence: None)
  Receive Date: 20120802
  Receipt Date: 20120112
  Transmission Date: 20120928
  Serious: Yes (Other)
  Sender: FDA-Public Use
  Company Number: US-ROCHE-1096035

PATIENT
  Sex: Female

DRUGS (6)
  1. XOLAIR [Suspect]
     Indication: ASTHMA
     Route: 065
  2. ALLEGRA [Concomitant]
     Route: 065
  3. ZYRTEC [Concomitant]
     Route: 065
  4. FLUTICASONE PROPIONATE [Concomitant]
     Dosage: 500/50
     Route: 065
  5. XOLAIR [Suspect]
     Indication: RHINITIS ALLERGIC
  6. SINGULAIR [Concomitant]
     Route: 065

REACTIONS (1)
  - PNEUMONIA [None]
